FAERS Safety Report 8992224 (Version 5)
Quarter: 2013Q2

REPORT INFORMATION
  Report Type: Spontaneous
  Country: US (occurrence: US)
  Receive Date: 20121231
  Receipt Date: 20130501
  Transmission Date: 20140414
  Serious: Yes (Hospitalization, Disabling, Other)
  Sender: FDA-Public Use
  Company Number: US-009507513-1201USA03704

PATIENT
  Sex: Female

DRUGS (6)
  1. FOSAMAX [Suspect]
     Indication: OSTEOPOROSIS
     Dosage: UNK
     Route: 048
     Dates: start: 199511, end: 200503
  2. FOSAMAX [Suspect]
     Dosage: 10 MG, UNK
     Route: 048
     Dates: start: 20001210, end: 20001214
  3. ALENDRONATE SODIUM [Suspect]
     Indication: OSTEOPOROSIS
     Dosage: 70 MG, QW
     Route: 048
     Dates: start: 200804, end: 201011
  4. ACTONEL [Concomitant]
     Indication: OSTEOPOROSIS
     Dosage: 35 MG, QW
     Route: 048
     Dates: start: 200503, end: 200804
  5. COUMADIN [Concomitant]
     Dosage: UNK
     Dates: start: 1968, end: 20041219
  6. PREVACID [Concomitant]
     Indication: GASTROOESOPHAGEAL REFLUX DISEASE

REACTIONS (41)
  - Femur fracture [Unknown]
  - Intramedullary rod insertion [Unknown]
  - Femoral neck fracture [Unknown]
  - Intramedullary rod insertion [Unknown]
  - Hip arthroplasty [Unknown]
  - Osteonecrosis [Unknown]
  - Cerebrovascular accident [Not Recovered/Not Resolved]
  - Foot fracture [Unknown]
  - Thrombosis [Unknown]
  - Intraductal proliferative breast lesion [Unknown]
  - Cerebrovascular accident [Unknown]
  - Surgery [Unknown]
  - Mastectomy [Unknown]
  - Intra-cerebral aneurysm operation [Unknown]
  - Laparoscopy [Unknown]
  - Pulmonary embolism [Unknown]
  - Pain [Unknown]
  - Hemiparesis [Unknown]
  - Cholecystectomy [Unknown]
  - Haemorrhagic stroke [Unknown]
  - Femur fracture [Unknown]
  - Biopsy lymph gland [Unknown]
  - Intracranial aneurysm [Unknown]
  - Depression [Not Recovered/Not Resolved]
  - Calcium deficiency [Unknown]
  - Tooth extraction [Unknown]
  - Hypertension [Not Recovered/Not Resolved]
  - Blood cholesterol increased [Unknown]
  - Device failure [Unknown]
  - Protein S deficiency [Unknown]
  - Hiatus hernia [Unknown]
  - Muscle rupture [Unknown]
  - Osteopenia [Unknown]
  - Poliomyelitis [Unknown]
  - Osteoarthritis [Unknown]
  - Pain [Unknown]
  - Urinary tract infection [Unknown]
  - Deep vein thrombosis [Unknown]
  - Gastritis [Unknown]
  - Headache [Unknown]
  - Constipation [Not Recovered/Not Resolved]
